FAERS Safety Report 8949387 (Version 1)
Quarter: 2012Q4

REPORT INFORMATION
  Report Type: Report from Study
  Country: GB (occurrence: GB)
  Receive Date: 20121206
  Receipt Date: 20121206
  Transmission Date: 20130627
  Serious: Yes (Death, Hospitalization)
  Sender: FDA-Public Use
  Company Number: GB-CELGENEUS-167-FK228-12081883

PATIENT
  Sex: Male
  Weight: 62 kg

DRUGS (67)
  1. ROMIDEPSIN [Suspect]
     Indication: T-CELL LYMPHOMA
     Route: 065
     Dates: start: 20120525, end: 20120525
  2. ROMIDEPSIN [Suspect]
     Route: 065
     Dates: start: 20120601, end: 20120601
  3. ROMIDEPSIN [Suspect]
     Route: 065
     Dates: start: 20120608, end: 20120608
  4. CODEINE [Concomitant]
     Indication: PAIN
     Dosage: 240 Milligram
     Route: 048
     Dates: start: 20120402
  5. CODEINE [Concomitant]
     Dosage: 120 Milligram
     Route: 048
     Dates: start: 20120406
  6. HYDROMOL [Concomitant]
     Indication: DRY SKIN
     Dosage: 2 Dosage forms
     Route: 061
     Dates: start: 20120424
  7. HYDROMOL [Concomitant]
     Route: 061
     Dates: start: 20120624
  8. MORPHINE [Concomitant]
     Indication: PAIN
     Dosage: 30 Milligram
     Route: 048
     Dates: start: 20120406
  9. MORPHINE [Concomitant]
     Dosage: 960 Milligram
     Route: 048
     Dates: start: 20120618
  10. MORPHINE [Concomitant]
     Dosage: 300 milliliter
     Route: 065
  11. MORPHINE [Concomitant]
     Dosage: 30 mg + 60 mg
     Route: 048
     Dates: start: 20120519
  12. MORPHINE [Concomitant]
     Dosage: 480 Milligram
     Route: 058
     Dates: start: 20120609
  13. MORPHINE [Concomitant]
     Dosage: 10 Mg
     Route: 048
     Dates: start: 20120621
  14. MORPHINE [Concomitant]
     Dosage: 360 Milligram
     Route: 058
     Dates: start: 20120606
  15. MORPHINE [Concomitant]
     Route: 041
     Dates: start: 20120529
  16. CHLORHEXIDINE [Concomitant]
     Indication: DRUG USE FOR UNKNOWN INDICATION
     Dosage: 40 milliliter
     Route: 061
     Dates: start: 20120406
  17. PARACETAMOL [Concomitant]
     Indication: PAIN
     Dosage: 4 Gram
     Route: 048
     Dates: start: 20120406
  18. PARACETAMOL [Concomitant]
     Route: 041
     Dates: start: 20120522
  19. BENZYDAMINE [Concomitant]
     Indication: DRUG USE FOR UNKNOWN INDICATION
     Dosage: 40 milliliter
     Route: 061
     Dates: start: 20120406
  20. DIPROBASE CREAM [Concomitant]
     Indication: DRUG USE FOR UNKNOWN INDICATION
     Dosage: 2 Dosage forms
     Route: 061
     Dates: start: 20120420
  21. ALLOPURINOL [Concomitant]
     Indication: DRUG USE FOR UNKNOWN INDICATION
     Dosage: 300 Milligram
     Route: 048
     Dates: start: 20120407
  22. RANITIDINE [Concomitant]
     Indication: DRUG USE FOR UNKNOWN INDICATION
     Dosage: 300 Milligram
     Route: 048
     Dates: start: 20120406
  23. TINZAPARIN [Concomitant]
     Indication: DRUG USE FOR UNKNOWN INDICATION
     Dosage: 3500 IU (International Unit)
     Route: 058
     Dates: start: 20120423
  24. TAZOCIN [Concomitant]
     Indication: NEUTROPENIC SEPSIS
     Dosage: 13.5 Gram
     Route: 041
     Dates: start: 20120420
  25. SODIUM ACID PHOSPHATE [Concomitant]
     Indication: DRUG USE FOR UNKNOWN INDICATION
     Dosage: 6 Dosage forms
     Route: 048
     Dates: start: 20120420
  26. AQUEOUS CREAM [Concomitant]
     Indication: DRUG USE FOR UNKNOWN INDICATION
     Dosage: 3 Dosage forms
     Route: 061
     Dates: start: 20120417
  27. CHLORPHENAMINE [Concomitant]
     Indication: ALLERGY
     Dosage: 24 Milligram
     Route: 048
     Dates: start: 20120416
  28. CHLORPHENAMINE [Concomitant]
     Dosage: 16 Milligram
     Route: 048
     Dates: start: 20120430
  29. VALGANCICLOVIR [Concomitant]
     Indication: CYTOMEGALOVIRUS INFECTION
     Dosage: 1800 Milligram
     Route: 048
     Dates: start: 20120411
  30. FOSCARNET [Concomitant]
     Indication: DRUG USE FOR UNKNOWN INDICATION
     Dosage: 10.5 Milligram
     Route: 041
     Dates: start: 20120407
  31. FILGRASTIM [Concomitant]
     Indication: DRUG USE FOR UNKNOWN INDICATION
     Dosage: MU
     Route: 058
     Dates: start: 20120407
  32. VALACICLOVIR [Concomitant]
     Indication: DRUG USE FOR UNKNOWN INDICATION
     Dosage: 2 Gram
     Route: 048
     Dates: start: 20120406
  33. TRANEXAMIC ACID [Concomitant]
     Indication: DRUG USE FOR UNKNOWN INDICATION
     Dosage: 3 Gram
     Route: 048
     Dates: start: 20120629
  34. TRANEXAMIC ACID [Concomitant]
     Route: 041
     Dates: start: 20120629, end: 20120629
  35. SENNA [Concomitant]
     Indication: DRUG USE FOR UNKNOWN INDICATION
     Dosage: 15 Milligram
     Route: 048
     Dates: start: 20120502
  36. PREGABALIN [Concomitant]
     Indication: DRUG USE FOR UNKNOWN INDICATION
     Dosage: 300 Milligram
     Route: 048
     Dates: start: 20120518
  37. POTASSIUM CHLORIDE [Concomitant]
     Indication: DRUG USE FOR UNKNOWN INDICATION
     Dosage: 6 Tablet
     Route: 048
     Dates: start: 20120607
  38. METOCLOPRAMIDE [Concomitant]
     Indication: NAUSEA
     Dosage: 30 Milligram
     Route: 048
  39. MACROGOL [Concomitant]
     Indication: CONSTIPATION
     Dosage: 13.8 g powder
     Route: 048
     Dates: start: 20120613
  40. LORAZEPAN [Concomitant]
     Indication: ANXIETY
     Dosage: 1.5 Milligram
     Route: 060
     Dates: start: 20120601
  41. LORAZEPAN [Concomitant]
     Dosage: 1 Milligram
     Route: 048
     Dates: start: 20120530
  42. LANSOPRAZOL [Concomitant]
     Indication: DRUG USE FOR UNKNOWN INDICATION
     Dosage: 30 Milligram
     Route: 048
     Dates: start: 20120625
  43. KETAMINE [Concomitant]
     Indication: PAIN
     Dosage: 120 Milligram
     Route: 048
     Dates: start: 20120530
  44. KETAMINE [Concomitant]
     Dosage: 60 Milligram
     Route: 048
     Dates: start: 20120601
  45. KETAMINE [Concomitant]
     Dosage: 320 Milligram
     Route: 048
  46. KETAMINE [Concomitant]
     Dosage: 200 Milligram
     Route: 048
     Dates: start: 20120531
  47. HYPROMELLOSE [Concomitant]
     Indication: DRUG USE FOR UNKNOWN INDICATION
     Dosage: right eyes
     Route: 057
  48. DOCUSATE [Concomitant]
     Indication: DRUG USE FOR UNKNOWN INDICATION
     Dosage: 400 Milligram
     Route: 048
     Dates: start: 20120502
  49. DEXAMETHASONE [Concomitant]
     Indication: DRUG USE FOR UNKNOWN INDICATION
     Dosage: 4 Milligram
     Route: 048
     Dates: start: 20120603
  50. CYCLIZINE [Concomitant]
     Indication: DRUG USE FOR UNKNOWN INDICATION
     Dosage: 150 Milligram
     Route: 048
     Dates: start: 20120527
  51. CLOBETASONE [Concomitant]
     Indication: DRUG USE FOR UNKNOWN INDICATION
     Dosage: 2 Dosage forms
     Route: 061
  52. FLUCONAZOLE [Concomitant]
     Indication: DRUG USE FOR UNKNOWN INDICATION
     Dosage: 100 Milligram
     Route: 048
     Dates: start: 20120620, end: 20120627
  53. ONDANSETRON [Concomitant]
     Indication: NAUSEA
     Dosage: 16 Milligram
     Route: 041
     Dates: start: 20120527
  54. ONDANSETRON [Concomitant]
     Dosage: 16 Milligram
     Route: 041
     Dates: start: 20120602
  55. MIDAZOLAM [Concomitant]
     Indication: DRUG USE FOR UNKNOWN INDICATION
     Route: 041
     Dates: start: 20120609, end: 20120609
  56. CIPROFLOXACIN [Concomitant]
     Indication: SEPSIS
     Dosage: 1000 Milligram
     Route: 048
     Dates: start: 20120609, end: 20120616
  57. MEROPENEM [Concomitant]
     Indication: PUO
     Route: 041
     Dates: start: 20120525, end: 20120609
  58. PETHIDINE [Concomitant]
     Indication: FEVER
     Dosage: 25 Milligram
     Route: 041
     Dates: start: 20120603
  59. AMPHOTERICIN [Concomitant]
     Indication: DRUG USE FOR UNKNOWN INDICATION
     Dosage: 180 Milligram
     Route: 041
     Dates: start: 20120602
  60. GENTAMICIN [Concomitant]
     Indication: FEBRILE NEUTROPENIA
     Route: 041
     Dates: start: 20120529, end: 20120529
  61. POTASSIUM CARBONATE [Concomitant]
     Indication: DRUG USE FOR UNKNOWN INDICATION
     Dosage: 9 Tablet
     Route: 048
     Dates: start: 20120525, end: 20120527
  62. MAGNESIUM GLYCEROPHOSPHATE [Concomitant]
     Indication: DRUG USE FOR UNKNOWN INDICATION
     Dosage: 6 Tablet
     Route: 048
     Dates: start: 20120518, end: 20120526
  63. CASPOFUNGIN [Concomitant]
     Indication: DRUG USE FOR UNKNOWN INDICATION
     Dosage: 50 Milligram
     Route: 041
     Dates: start: 20120517
  64. CICLOSPORIN [Concomitant]
     Indication: DRUG USE FOR UNKNOWN INDICATION
     Dosage: 180 Milligram
     Route: 048
     Dates: start: 20120516
  65. CLOBETASOL [Concomitant]
     Indication: DRUG USE FOR UNKNOWN INDICATION
     Dosage: 2 Dosage forms
     Route: 061
     Dates: start: 20120509
  66. CHLORAMBUCIL [Concomitant]
     Indication: DRUG USE FOR UNKNOWN INDICATION
     Route: 065
  67. TEICOPLANIN [Concomitant]
     Indication: DRUG USE FOR UNKNOWN INDICATION
     Route: 065

REACTIONS (1)
  - Lymphoma [Fatal]
